FAERS Safety Report 16759762 (Version 6)
Quarter: 2020Q4

REPORT INFORMATION
  Report Type: Report from Study
  Country: BR (occurrence: BR)
  Receive Date: 20190830
  Receipt Date: 20201028
  Transmission Date: 20210113
  Serious: Yes (Disabling)
  Sender: FDA-Public Use
  Company Number: BR-ROCHE-2383216

PATIENT
  Age: 40 Year
  Sex: Female
  Weight: 86 kg

DRUGS (48)
  1. CYCLOPHOSPHAMIDE. [Suspect]
     Active Substance: CYCLOPHOSPHAMIDE
     Indication: HER2 POSITIVE BREAST CANCER
     Dosage: DOSE OF LAST CYCLOPHOSPHAMIDE ADMINISTERED PRIOR TO SAE ONSET (1182 MG): 27/MAY/2019
     Route: 042
     Dates: start: 20190416
  2. LOSARTAN POTASSIUM. [Concomitant]
     Active Substance: LOSARTAN POTASSIUM
     Indication: HYPERTENSION
     Dates: start: 2004
  3. RANITIDINE. [Concomitant]
     Active Substance: RANITIDINE
     Dates: start: 20190626, end: 20190626
  4. DEXAMETHASONE. [Concomitant]
     Active Substance: DEXAMETHASONE
     Route: 042
     Dates: start: 20190828, end: 20190828
  5. FERROUS SULFATE. [Concomitant]
     Active Substance: FERROUS SULFATE
     Indication: ASTHENIA
  6. LEVOTHYROXINE. [Concomitant]
     Active Substance: LEVOTHYROXINE
     Indication: HYPOTHYROIDISM
     Dates: start: 20190513
  7. RANITIDINE. [Concomitant]
     Active Substance: RANITIDINE
     Dates: start: 20190710, end: 20190710
  8. RANITIDINE. [Concomitant]
     Active Substance: RANITIDINE
     Dates: start: 20190807, end: 20190807
  9. DEXAMETHASONE. [Concomitant]
     Active Substance: DEXAMETHASONE
     Route: 042
     Dates: start: 20190626, end: 20190626
  10. DEXAMETHASONE. [Concomitant]
     Active Substance: DEXAMETHASONE
     Route: 042
     Dates: start: 20190710, end: 20190710
  11. DIPHENHYDRAMINE. [Concomitant]
     Active Substance: DIPHENHYDRAMINE
     Dates: start: 20190626, end: 20190626
  12. DOXORUBICIN [Suspect]
     Active Substance: DOXORUBICIN
     Indication: HER2 POSITIVE BREAST CANCER
     Dosage: DOSE OF LAST DOXORUBICIN ADMINISTERED PRIOR TO SAE ONSET (118.2 MG): 27/MAY/2019
     Route: 042
     Dates: start: 20190416
  13. DIPYRONE [Concomitant]
     Active Substance: DIPYRONE
     Indication: COUGH
     Dates: start: 20190622
  14. RANITIDINE. [Concomitant]
     Active Substance: RANITIDINE
     Dates: start: 20190724, end: 20190724
  15. RANITIDINE. [Concomitant]
     Active Substance: RANITIDINE
     Dates: start: 20190828, end: 20190828
  16. DIPHENHYDRAMINE. [Concomitant]
     Active Substance: DIPHENHYDRAMINE
     Dates: start: 20190821, end: 20190821
  17. HYDROCORTISONE. [Concomitant]
     Active Substance: HYDROCORTISONE
     Dosage: 1 OTHER
     Route: 061
     Dates: start: 20190816, end: 20190823
  18. TRASTUZUMAB. [Suspect]
     Active Substance: TRASTUZUMAB
     Indication: HER2 POSITIVE BREAST CANCER
     Dosage: LOADING DOSE IN CYCLE 1
     Route: 042
     Dates: start: 20190612
  19. TRASTUZUMAB. [Suspect]
     Active Substance: TRASTUZUMAB
     Dosage: ON 24/JUL/2019, SHE RECEIVED MOST RECENT DOSE OF TRASTUZUMAB (516 MG) PRIOR TO ONSET OF SERIOUS ADVE
     Route: 042
  20. PERTUZUMAB. [Suspect]
     Active Substance: PERTUZUMAB
     Dosage: ON 24/JUL/2019, SHE RECEIVED MOST RECENT DOSE OF PERTUZUMAB (420 MG) PRIOR TO ONSET OF SERIOUS ADVER
     Route: 042
  21. RANITIDINE. [Concomitant]
     Active Substance: RANITIDINE
     Dates: start: 20190821, end: 20190821
  22. DEXAMETHASONE. [Concomitant]
     Active Substance: DEXAMETHASONE
     Route: 042
     Dates: start: 20190703, end: 20190703
  23. DEXAMETHASONE. [Concomitant]
     Active Substance: DEXAMETHASONE
     Route: 042
     Dates: start: 20190807, end: 20190807
  24. PACLITAXEL. [Suspect]
     Active Substance: PACLITAXEL
     Indication: HER2 POSITIVE BREAST CANCER
     Dosage: DOSE OF LAST PACLITAXEL ADMINISTERED PRIOR TO SAE ONSET (157.6 MG): 24/JUL/2019
     Route: 042
     Dates: start: 20190612
  25. CHLORTALIDONE [Concomitant]
     Active Substance: CHLORTHALIDONE
     Indication: HYPERTENSION
     Dates: start: 20190612
  26. RANITIDINE. [Concomitant]
     Active Substance: RANITIDINE
     Dates: start: 20190731, end: 20190731
  27. DEXAMETHASONE. [Concomitant]
     Active Substance: DEXAMETHASONE
     Route: 042
     Dates: start: 20190814, end: 20190814
  28. DEXAMETHASONE. [Concomitant]
     Active Substance: DEXAMETHASONE
     Route: 042
     Dates: start: 20190821, end: 20190821
  29. DIPHENHYDRAMINE. [Concomitant]
     Active Substance: DIPHENHYDRAMINE
     Dates: start: 20190807, end: 20190807
  30. FERROUS SULFATE. [Concomitant]
     Active Substance: FERROUS SULFATE
     Indication: ANAEMIA
     Dates: start: 20190703
  31. NISTATIN [Concomitant]
     Active Substance: NYSTATIN
     Indication: RASH
     Dates: start: 20190708, end: 20190712
  32. DEXAMETHASONE. [Concomitant]
     Active Substance: DEXAMETHASONE
     Route: 042
     Dates: start: 20190731, end: 20190731
  33. DIPHENHYDRAMINE. [Concomitant]
     Active Substance: DIPHENHYDRAMINE
     Dates: start: 20190828, end: 20190828
  34. DIPHENHYDRAMINE. [Concomitant]
     Active Substance: DIPHENHYDRAMINE
     Dates: start: 20190710, end: 20190710
  35. PERTUZUMAB. [Suspect]
     Active Substance: PERTUZUMAB
     Indication: HER2 POSITIVE BREAST CANCER
     Dosage: LOADING DOSE IN CYCLE 1.
     Route: 042
     Dates: start: 20190612
  36. AMOXICILLIN. [Concomitant]
     Active Substance: AMOXICILLIN
     Indication: EAR PAIN
     Dates: start: 20190711, end: 20190718
  37. RANITIDINE. [Concomitant]
     Active Substance: RANITIDINE
     Dates: start: 20190717, end: 20190717
  38. DEXAMETHASONE. [Concomitant]
     Active Substance: DEXAMETHASONE
     Route: 042
     Dates: start: 20190724, end: 20190724
  39. DIPHENHYDRAMINE. [Concomitant]
     Active Substance: DIPHENHYDRAMINE
     Dates: start: 20190731, end: 20190731
  40. DIPHENHYDRAMINE. [Concomitant]
     Active Substance: DIPHENHYDRAMINE
     Dates: start: 20190814, end: 20190814
  41. PLACEBO [Suspect]
     Active Substance: UNSPECIFIED INGREDIENT
     Indication: HER2 POSITIVE BREAST CANCER
     Dosage: DATE OF MOST RECENT DOSE OF PLACEBO PRIOR TO SAE ONSET ON 24/JUL/2019
     Route: 042
     Dates: start: 20190416
  42. RANITIDINE. [Concomitant]
     Active Substance: RANITIDINE
     Dates: start: 20190814, end: 20190814
  43. RANITIDINE. [Concomitant]
     Active Substance: RANITIDINE
     Dates: start: 20190703, end: 20190703
  44. DEXAMETHASONE. [Concomitant]
     Active Substance: DEXAMETHASONE
     Route: 042
     Dates: start: 20190717, end: 20190717
  45. DIPHENHYDRAMINE. [Concomitant]
     Active Substance: DIPHENHYDRAMINE
     Dates: start: 20190724, end: 20190724
  46. DIPHENHYDRAMINE. [Concomitant]
     Active Substance: DIPHENHYDRAMINE
     Dates: start: 20190703, end: 20190703
  47. DIPHENHYDRAMINE. [Concomitant]
     Active Substance: DIPHENHYDRAMINE
     Dates: start: 20190717, end: 20190717
  48. ACETYLSALICYLIC ACID [Concomitant]
     Active Substance: ASPIRIN
     Indication: METRORRHAGIA
     Dates: start: 20191217

REACTIONS (1)
  - Eye discharge [Recovered/Resolved]

NARRATIVE: CASE EVENT DATE: 20190724
